FAERS Safety Report 21510174 (Version 5)
Quarter: 2024Q1

REPORT INFORMATION
  Report Type: Report from Study
  Country: US (occurrence: US)
  Receive Date: 20221026
  Receipt Date: 20240313
  Transmission Date: 20240410
  Serious: Yes (Other)
  Sender: FDA-Public Use
  Company Number: US-JAZZ-2022-US-031686

PATIENT
  Sex: Male

DRUGS (8)
  1. XYWAV [Suspect]
     Active Substance: CALCIUM OXYBATE\MAGNESIUM OXYBATE\POTASSIUM OXYBATE\SODIUM OXYBATE
     Indication: Narcolepsy
     Dosage: 4.5 GRAM, BID
     Route: 048
  2. XYWAV [Suspect]
     Active Substance: CALCIUM OXYBATE\MAGNESIUM OXYBATE\POTASSIUM OXYBATE\SODIUM OXYBATE
     Indication: Cataplexy
  3. ADDERALL [Concomitant]
     Active Substance: AMPHETAMINE ASPARTATE\AMPHETAMINE SULFATE\DEXTROAMPHETAMINE SACCHARATE\DEXTROAMPHETAMINE SULFATE
     Indication: Narcolepsy
     Dosage: 10 MG TABLET
     Dates: start: 20211001
  4. ADDERALL [Concomitant]
     Active Substance: AMPHETAMINE ASPARTATE\AMPHETAMINE SULFATE\DEXTROAMPHETAMINE SACCHARATE\DEXTROAMPHETAMINE SULFATE
     Indication: Cataplexy
     Dosage: 15 MG CAPSULE
     Dates: start: 20220901
  5. LOSARTAN POTASSIUM [Concomitant]
     Active Substance: LOSARTAN POTASSIUM
     Indication: Blood pressure measurement
     Dosage: 50 MILLIGRAM
     Route: 048
     Dates: start: 20220321
  6. VENLAFAXINE HCL [Concomitant]
     Active Substance: VENLAFAXINE HYDROCHLORIDE
     Indication: Product used for unknown indication
     Dosage: 25 MILLIGRAM, QD
     Route: 048
     Dates: start: 20220429
  7. PANTOPRAZOLE SODIUM ANHYDROUS [Concomitant]
     Active Substance: PANTOPRAZOLE SODIUM ANHYDROUS
     Indication: Product used for unknown indication
     Dosage: 20 MILLIGRAM, QD
     Route: 048
     Dates: start: 20221106
  8. BUPROPION HYDROCHLORIDE [Concomitant]
     Active Substance: BUPROPION HYDROCHLORIDE
     Indication: Product used for unknown indication
     Dosage: 300 MILLIGRAM
     Route: 048

REACTIONS (8)
  - Suicidal ideation [Unknown]
  - Condition aggravated [Unknown]
  - Surgery [Unknown]
  - Hallucination [Unknown]
  - Toothache [Unknown]
  - Headache [Unknown]
  - Product administration interrupted [Unknown]
  - Intentional product use issue [Unknown]
